FAERS Safety Report 18355716 (Version 6)
Quarter: 2022Q2

REPORT INFORMATION
  Report Type: Report from Study
  Country: None (occurrence: CA)
  Receive Date: 20201007
  Receipt Date: 20220415
  Transmission Date: 20220721
  Serious: Yes (Death, Hospitalization, Disabling, Other)
  Sender: FDA-Public Use
  Company Number: CA-AKCEA THERAPEUTICS-2020IS001503

PATIENT
  Age: 79 Year
  Sex: Male
  Weight: 83.182 kg

DRUGS (3)
  1. TEGSEDI [Suspect]
     Active Substance: INOTERSEN SODIUM
     Indication: Hereditary neuropathic amyloidosis
     Route: 058
     Dates: start: 20200824
  2. DEVICE [Suspect]
     Active Substance: DEVICE
  3. ELIQUIS [Concomitant]
     Active Substance: APIXABAN
     Route: 048
     Dates: start: 2019

REACTIONS (28)
  - Ischaemic stroke [Not Recovered/Not Resolved]
  - Hemiparesis [Recovering/Resolving]
  - Confusional state [Unknown]
  - Fall [Recovered/Resolved]
  - Mental disorder [Not Recovered/Not Resolved]
  - Encephalomalacia [Unknown]
  - Neurodegenerative disorder [Unknown]
  - Cerebellar atrophy [Unknown]
  - Ischaemic cerebral infarction [Unknown]
  - Basal ganglia infarction [Unknown]
  - Internal capsule infarction [Unknown]
  - Thalamic infarction [Unknown]
  - Ventricular hypokinesia [Unknown]
  - Aortic valve incompetence [Unknown]
  - Carotid artery stenosis [Unknown]
  - Cerebrovascular accident [Unknown]
  - White matter lesion [Unknown]
  - Hypertrophy [Unknown]
  - Systolic dysfunction [Unknown]
  - Aortic valve sclerosis [Unknown]
  - Dilatation atrial [Unknown]
  - Mitral valve sclerosis [Unknown]
  - Mitral valve incompetence [Unknown]
  - Aortic valve sclerosis [Unknown]
  - Pulmonary valve incompetence [Unknown]
  - Carotid arteriosclerosis [Unknown]
  - Arteriosclerosis [Unknown]
  - Death [Fatal]

NARRATIVE: CASE EVENT DATE: 20200901
